FAERS Safety Report 22598945 (Version 1)
Quarter: 2023Q2

REPORT INFORMATION
  Report Type: Report from Study
  Country: US (occurrence: US)
  Receive Date: 20230614
  Receipt Date: 20230614
  Transmission Date: 20230721
  Serious: Yes (Other)
  Sender: FDA-Public Use
  Company Number: US-002147023-NVSC2023US131018

PATIENT
  Sex: Male
  Weight: 95.71 kg

DRUGS (8)
  1. OMEPRAZOLE [Suspect]
     Active Substance: OMEPRAZOLE
     Indication: Ankylosing spondylitis
     Dosage: UNK
     Route: 065
  2. PREDNISONE [Suspect]
     Active Substance: PREDNISONE
     Indication: Ankylosing spondylitis
     Dosage: UNK
     Route: 065
  3. VITAMIN C [Suspect]
     Active Substance: ASCORBIC ACID
     Indication: Ankylosing spondylitis
     Dosage: UNK
     Route: 065
  4. CALCIUM CITRATE [Suspect]
     Active Substance: CALCIUM CITRATE
     Indication: Ankylosing spondylitis
     Dosage: UNK
     Route: 065
  5. MAGNESIUM [Suspect]
     Active Substance: MAGNESIUM
     Indication: Ankylosing spondylitis
     Dosage: UNK
     Route: 065
  6. ZINC [Suspect]
     Active Substance: ZINC
     Indication: Ankylosing spondylitis
     Dosage: UNK
     Route: 065
  7. CELECOXIB [Suspect]
     Active Substance: CELECOXIB
     Indication: Ankylosing spondylitis
     Dosage: UNK
     Route: 065
  8. HUMIRA [Suspect]
     Active Substance: ADALIMUMAB
     Indication: Product used for unknown indication
     Dosage: UNK (STARTED 4 MONTHS AGO)
     Route: 065

REACTIONS (16)
  - Ankylosing spondylitis [Unknown]
  - Multiple sclerosis [Unknown]
  - Blood pressure increased [Unknown]
  - Oedema peripheral [Unknown]
  - Arthralgia [Unknown]
  - Condition aggravated [Unknown]
  - Joint swelling [Unknown]
  - Arthropathy [Unknown]
  - Essential hypertension [Unknown]
  - Psoriasis [Unknown]
  - Back pain [Unknown]
  - Muscular weakness [Unknown]
  - Pain in extremity [Unknown]
  - Sacroiliitis [Unknown]
  - Drug ineffective [Unknown]
  - Product use in unapproved indication [Unknown]
